FAERS Safety Report 8598312-3 (Version None)
Quarter: 2012Q3

REPORT INFORMATION
  Report Type: 
  Country: None (occurrence: None)
  Receive Date: 20120806
  Receipt Date: 20120806
  Transmission Date: 20120928
  Serious: No
  Sender: FDA-Public Use
  Company Number: None

PATIENT
  Age: 61 Year
  Sex: Male
  Weight: 106.1417 kg

DRUGS (1)
  1. INDOMETHACIN SODIUM [Suspect]
     Indication: GOUT
     Dosage: 25MG TID PRN PO
     Route: 048
     Dates: start: 20120804, end: 20120804

REACTIONS (2)
  - FALL [None]
  - VERTIGO [None]
